FAERS Safety Report 18873471 (Version 6)
Quarter: 2021Q1

REPORT INFORMATION
  Report Type: Report from Study
  Country: JP (occurrence: JP)
  Receive Date: 20210210
  Receipt Date: 20210331
  Transmission Date: 20210420
  Serious: Yes (Hospitalization)
  Sender: FDA-Public Use
  Company Number: NVSC2021JP029999

PATIENT
  Age: 71 Year
  Sex: Male
  Weight: 59.1 kg

DRUGS (94)
  1. ALBUMIN [Concomitant]
     Active Substance: ALBUMIN HUMAN
     Dosage: 25 %
     Route: 065
     Dates: start: 20210210, end: 20210210
  2. MEROPENEM. [Concomitant]
     Active Substance: MEROPENEM
     Dosage: UNK
     Route: 065
     Dates: start: 20210103, end: 20210209
  3. INSULIN HUMAN [Concomitant]
     Active Substance: INSULIN HUMAN
     Indication: HYPERGLYCAEMIA
     Dosage: UNK
     Route: 065
     Dates: start: 20210129
  4. INSULIN HUMAN [Concomitant]
     Active Substance: INSULIN HUMAN
     Dosage: UNK
     Route: 065
     Dates: start: 20210213
  5. DALTEPARIN SODIUM [Concomitant]
     Active Substance: DALTEPARIN SODIUM
     Dosage: UNK
     Route: 065
     Dates: start: 20210208, end: 20210208
  6. LEVOFLOXACIN HEMIHYDRATE [Concomitant]
     Active Substance: LEVOFLOXACIN
     Dosage: UNK
     Route: 065
     Dates: start: 20210204
  7. SODIUM CHLORIDE. [Concomitant]
     Active Substance: SODIUM CHLORIDE
     Dosage: UNK
     Route: 065
     Dates: start: 20210201, end: 20210201
  8. SODIUM CHLORIDE. [Concomitant]
     Active Substance: SODIUM CHLORIDE
     Dosage: UNK
     Route: 065
     Dates: start: 20210202, end: 20210202
  9. POTASSIUM CHLORIDE. [Concomitant]
     Active Substance: POTASSIUM CHLORIDE
     Dosage: UNK
     Route: 065
     Dates: start: 20210120, end: 20210120
  10. POTASSIUM CHLORIDE. [Concomitant]
     Active Substance: POTASSIUM CHLORIDE
     Dosage: UNK
     Route: 065
     Dates: start: 20210131, end: 20210131
  11. TOCILIZUMAB. [Concomitant]
     Active Substance: TOCILIZUMAB
     Indication: CYTOKINE RELEASE SYNDROME
     Dosage: UNK
     Route: 065
     Dates: start: 20210211, end: 20210211
  12. MEDLENIK [Concomitant]
     Active Substance: CUPRIC SULFATE\FERRIC CHLORIDE\MANGANESE CHLORIDE\POTASSIUM IODIDE\ZINC SULFATE
     Indication: WEIGHT DECREASED
     Dosage: UNK
     Route: 065
     Dates: start: 20210204
  13. CICLOSPORIN [Concomitant]
     Active Substance: CYCLOSPORINE
     Indication: HAEMOPHAGOCYTIC LYMPHOHISTIOCYTOSIS
     Dosage: UNK
     Route: 065
     Dates: start: 20210213
  14. WHITE PETROLATUM [Concomitant]
     Active Substance: PETROLATUM
     Indication: DRY SKIN
     Dosage: UNK
     Route: 065
     Dates: start: 20210116
  15. CISPLATIN. [Concomitant]
     Active Substance: CISPLATIN
     Indication: CHEMOTHERAPY
     Dosage: UNK
     Route: 065
     Dates: start: 20191209
  16. KYMRIAH [Suspect]
     Active Substance: TISAGENLECLEUCEL
     Indication: LYMPHOMA
     Dosage: 1.12 UNK, ONCE/SINGLE
     Route: 042
     Dates: start: 20200210
  17. ALBUMIN [Concomitant]
     Active Substance: ALBUMIN HUMAN
     Dosage: 25 %
     Route: 065
     Dates: start: 20210124, end: 20210124
  18. MEROPENEM. [Concomitant]
     Active Substance: MEROPENEM
     Indication: PNEUMONIA
     Dosage: UNK
     Route: 065
     Dates: start: 20201223
  19. TEICOPLANIN [Concomitant]
     Active Substance: TEICOPLANIN
     Indication: STOMATITIS
     Dosage: UNK
     Route: 065
     Dates: start: 20210113, end: 20210118
  20. TEICOPLANIN [Concomitant]
     Active Substance: TEICOPLANIN
     Dosage: UNK
     Route: 065
     Dates: start: 20210207, end: 20210207
  21. ANTITHROMBIN GAMMA [Concomitant]
     Indication: COAGULOPATHY
     Dosage: UNK
     Route: 065
     Dates: start: 20210119, end: 20210120
  22. ANTITHROMBIN GAMMA [Concomitant]
     Dosage: UNK
     Route: 065
     Dates: start: 20210212, end: 20210214
  23. ACETAMINOPHEN. [Concomitant]
     Active Substance: ACETAMINOPHEN
     Indication: PYREXIA
  24. ELNEOPA NO.1 [Concomitant]
     Active Substance: AMINO ACIDS\DEXTROSE\ELECTROLYTES NOS\MINERALS\VITAMINS
     Indication: WEIGHT DECREASED
     Dosage: UNK
     Route: 065
     Dates: start: 20210202, end: 20210202
  25. ALBUMIN [Concomitant]
     Active Substance: ALBUMIN HUMAN
     Dosage: 25 %
     Route: 065
     Dates: start: 20210212, end: 20210212
  26. MAGNESIUM SULFATE. [Concomitant]
     Active Substance: MAGNESIUM SULFATE
     Dosage: UNK
     Route: 065
     Dates: start: 20210131, end: 20210131
  27. TEICOPLANIN [Concomitant]
     Active Substance: TEICOPLANIN
     Indication: SEPSIS
     Dosage: UNK
     Route: 065
     Dates: start: 20210123, end: 20210202
  28. TEICOPLANIN [Concomitant]
     Active Substance: TEICOPLANIN
     Dosage: UNK
     Route: 065
     Dates: start: 20210204, end: 20210205
  29. ELNEOPA NO.2 [Concomitant]
     Active Substance: AMINO ACIDS\DEXTROSE\ELECTROLYTES NOS\MINERALS\VITAMINS
     Indication: WEIGHT DECREASED
     Dosage: UNK
     Route: 065
     Dates: start: 20210103, end: 20210129
  30. NORADRENALINE [Concomitant]
     Active Substance: NOREPINEPHRINE
     Indication: SEPSIS
     Dosage: UNK
     Route: 065
     Dates: start: 20210119, end: 20210121
  31. LEVOFLOXACIN HEMIHYDRATE [Concomitant]
     Active Substance: LEVOFLOXACIN
     Indication: PNEUMONIA
     Dosage: UNK
     Route: 065
     Dates: start: 20210116, end: 20210203
  32. SOLDEM 3A [Concomitant]
     Active Substance: CARBOHYDRATES\POTASSIUM CHLORIDE\SODIUM CHLORIDE\SODIUM LACTATE
     Indication: PROPHYLAXIS
     Dosage: UNK
     Route: 065
     Dates: start: 20210114, end: 20210125
  33. SOLDEM 3A [Concomitant]
     Active Substance: CARBOHYDRATES\POTASSIUM CHLORIDE\SODIUM CHLORIDE\SODIUM LACTATE
     Dosage: UNK
     Route: 065
     Dates: start: 20210126, end: 20210129
  34. SODIUM CHLORIDE. [Concomitant]
     Active Substance: SODIUM CHLORIDE
     Indication: SEPSIS
     Dosage: UNK
     Route: 065
     Dates: start: 20210129, end: 20210129
  35. SODIUM CHLORIDE. [Concomitant]
     Active Substance: SODIUM CHLORIDE
     Dosage: UNK
     Route: 065
     Dates: start: 20210130, end: 20210130
  36. POTASSIUM CHLORIDE. [Concomitant]
     Active Substance: POTASSIUM CHLORIDE
     Dosage: UNK
     Route: 065
     Dates: start: 20210121, end: 20210121
  37. CALCIUM GLUCONATE. [Concomitant]
     Active Substance: CALCIUM GLUCONATE
     Indication: ACUTE KIDNEY INJURY
     Dosage: UNK
     Route: 065
     Dates: start: 20210205, end: 20210205
  38. CICLOSPORIN [Concomitant]
     Active Substance: CYCLOSPORINE
     Dosage: UNK
     Route: 065
     Dates: start: 20210213, end: 20210214
  39. HEPARINOID [Concomitant]
     Active Substance: CHONDROITIN SULFATE (BOVINE)
     Dosage: UNK
     Route: 065
     Dates: start: 20210126
  40. GEMCITABINE. [Concomitant]
     Active Substance: GEMCITABINE
     Indication: CHEMOTHERAPY
     Dosage: UNK
     Route: 065
     Dates: start: 20191209
  41. DEXAMETHASONE SODIUM PHOSPHATE. [Suspect]
     Active Substance: DEXAMETHASONE SODIUM PHOSPHATE
     Indication: ENCEPHALOPATHY
     Dosage: UNK
     Route: 065
     Dates: start: 20210121, end: 20210122
  42. ALBUMIN [Concomitant]
     Active Substance: ALBUMIN HUMAN
     Dosage: 25 %
     Route: 065
     Dates: start: 20210202, end: 20210208
  43. INSULIN HUMAN [Concomitant]
     Active Substance: INSULIN HUMAN
     Indication: PROPHYLAXIS
     Dosage: UNK
     Route: 065
     Dates: start: 20210103, end: 20210129
  44. ANTITHROMBIN GAMMA [Concomitant]
     Dosage: UNK
     Route: 065
     Dates: start: 20210120, end: 20210120
  45. CASPOFUNGIN ACETATE. [Concomitant]
     Active Substance: CASPOFUNGIN ACETATE
     Indication: PNEUMONIA
     Dosage: UNK
     Route: 065
     Dates: start: 20210121, end: 20210122
  46. RABEPRAZOLE SODIUM. [Concomitant]
     Active Substance: RABEPRAZOLE SODIUM
     Indication: PROPHYLAXIS
     Dosage: UNK
     Route: 065
     Dates: start: 20200930, end: 20210119
  47. MULTAMIN [Concomitant]
     Active Substance: VITAMINS
     Indication: WEIGHT DECREASED
     Dosage: UNK
     Route: 065
     Dates: start: 20210204
  48. KIDMIN [Concomitant]
     Active Substance: AMINO ACIDS\ELECTROLYTES NOS
     Indication: WEIGHT DECREASED
     Dosage: UNK
     Route: 065
     Dates: start: 20210204
  49. FLUDARABINE [Concomitant]
     Active Substance: FLUDARABINE PHOSPHATE
     Indication: CHEMOTHERAPY
     Dosage: UNK
     Route: 065
     Dates: start: 20200206, end: 20200208
  50. RITUXIMAB. [Concomitant]
     Active Substance: RITUXIMAB
     Indication: CHEMOTHERAPY
     Dosage: UNK
     Route: 065
     Dates: start: 20191209
  51. ALBUMIN [Concomitant]
     Active Substance: ALBUMIN HUMAN
     Indication: HYPOALBUMINAEMIA
     Dosage: 25 %
     Route: 065
     Dates: start: 20210119, end: 20210119
  52. MAGNESIUM SULFATE. [Concomitant]
     Active Substance: MAGNESIUM SULFATE
     Dosage: UNK
     Route: 065
     Dates: start: 20210120, end: 20210129
  53. HYDROCORTISONE SODIUM PHOSPHATE [Concomitant]
     Active Substance: HYDROCORTISONE SODIUM PHOSPHATE
     Indication: PYREXIA
     Dosage: UNK
     Route: 065
     Dates: start: 20210119, end: 20210119
  54. ANTITHROMBIN GAMMA [Concomitant]
     Dosage: UNK
     Route: 065
     Dates: start: 20210204, end: 20210209
  55. THROMBOMODULIN ALFA [Concomitant]
     Active Substance: THROMBOMODULIN ALFA
     Indication: COAGULOPATHY
     Dosage: UNK
     Route: 065
     Dates: start: 20210121, end: 20210202
  56. DALTEPARIN SODIUM [Concomitant]
     Active Substance: DALTEPARIN SODIUM
     Indication: COAGULOPATHY
     Dosage: UNK
     Route: 065
     Dates: start: 20210113, end: 20210119
  57. DALTEPARIN SODIUM [Concomitant]
     Active Substance: DALTEPARIN SODIUM
     Dosage: UNK
     Route: 065
     Dates: start: 20210203, end: 20210207
  58. CASPOFUNGIN ACETATE. [Concomitant]
     Active Substance: CASPOFUNGIN ACETATE
     Dosage: UNK
     Route: 065
     Dates: start: 20210203, end: 20210203
  59. HIZENTRA [Concomitant]
     Active Substance: HUMAN IMMUNOGLOBULIN G
     Indication: HYPOGAMMAGLOBULINAEMIA
     Dosage: 20% 2G/10ML
     Route: 058
     Dates: start: 20210104, end: 20210125
  60. SOLDEM 1 [Concomitant]
     Active Substance: DEXTROSE\SODIUM CHLORIDE\SODIUM LACTATE
     Indication: PROPHYLAXIS
     Dosage: UNK
     Route: 065
     Dates: start: 20210202, end: 20210202
  61. DIBASIC SODIUM PHOSPHATE [Concomitant]
     Indication: HYPOPHOSPHATAEMIA
     Dosage: UNK
     Route: 065
     Dates: start: 20210119, end: 20210120
  62. ZINC OXIDE. [Concomitant]
     Active Substance: ZINC OXIDE
     Indication: SKIN ULCER
     Dosage: UNK
     Route: 065
     Dates: start: 20210206
  63. DEXAMETHASONE SODIUM PHOSPHATE. [Suspect]
     Active Substance: DEXAMETHASONE SODIUM PHOSPHATE
     Dosage: UNK
     Route: 065
     Dates: start: 20210208, end: 20210214
  64. GABEXATE MESILATE [Concomitant]
     Active Substance: GABEXATE MESYLATE
     Indication: COAGULOPATHY
     Dosage: UNK
     Route: 065
     Dates: start: 20210208
  65. SODIUM BICARBONATE. [Concomitant]
     Active Substance: SODIUM BICARBONATE
     Indication: STOMATITIS
     Dosage: UNK
     Route: 065
     Dates: start: 20200731, end: 20210204
  66. TEICOPLANIN [Concomitant]
     Active Substance: TEICOPLANIN
     Indication: PNEUMONIA
     Dosage: UNK
     Route: 065
     Dates: start: 20210120, end: 20210122
  67. TEICOPLANIN [Concomitant]
     Active Substance: TEICOPLANIN
     Dosage: UNK
     Route: 065
     Dates: start: 20210208, end: 20210210
  68. INSULIN HUMAN [Concomitant]
     Active Substance: INSULIN HUMAN
     Dosage: UNK
     Route: 065
     Dates: start: 20210204, end: 20210204
  69. ACETAMINOPHEN. [Concomitant]
     Active Substance: ACETAMINOPHEN
     Indication: STOMATITIS
     Dosage: UNK
     Route: 065
     Dates: start: 20201126, end: 20210119
  70. DEXAMETHASONE SODIUM PHOSPHATE. [Suspect]
     Active Substance: DEXAMETHASONE SODIUM PHOSPHATE
     Dosage: UNK
     Route: 065
     Dates: start: 20210123, end: 20210207
  71. SODIUM GUALENATE HYDRATE [Concomitant]
     Active Substance: SODIUM GUALENATE MONOHYDRATE
     Indication: STOMATITIS
     Dosage: UNK
     Route: 065
     Dates: start: 20200731, end: 20210204
  72. MEROPENEM. [Concomitant]
     Active Substance: MEROPENEM
     Dosage: UNK
     Route: 065
     Dates: start: 20210210
  73. TEICOPLANIN [Concomitant]
     Active Substance: TEICOPLANIN
     Dosage: UNK
     Route: 065
     Dates: start: 20210212, end: 20210212
  74. INSULIN HUMAN [Concomitant]
     Active Substance: INSULIN HUMAN
     Dosage: UNK
     Route: 065
     Dates: start: 20210202, end: 20210202
  75. CASPOFUNGIN ACETATE. [Concomitant]
     Active Substance: CASPOFUNGIN ACETATE
     Dosage: UNK
     Route: 065
     Dates: start: 20210204
  76. ACETAMINOPHEN. [Concomitant]
     Active Substance: ACETAMINOPHEN
     Indication: PAIN
     Dosage: UNK
     Route: 065
     Dates: start: 20201001, end: 20210118
  77. SOLDEM 1 [Concomitant]
     Active Substance: DEXTROSE\SODIUM CHLORIDE\SODIUM LACTATE
     Dosage: UNK
     Route: 065
     Dates: start: 20210205, end: 20210208
  78. POTASSIUM CHLORIDE. [Concomitant]
     Active Substance: POTASSIUM CHLORIDE
     Dosage: UNK
     Route: 065
     Dates: start: 20210125, end: 20210129
  79. HEPARINOID [Concomitant]
     Active Substance: CHONDROITIN SULFATE (BOVINE)
     Indication: DRY SKIN
     Dosage: UNK
     Route: 065
     Dates: start: 20210107
  80. CYCLOPHOSPHAMIDE. [Concomitant]
     Active Substance: CYCLOPHOSPHAMIDE
     Indication: CHEMOTHERAPY
     Dosage: UNK
     Route: 065
     Dates: start: 20200206, end: 20200208
  81. DEXAMETHASONE. [Concomitant]
     Active Substance: DEXAMETHASONE
     Indication: CHEMOTHERAPY
     Dosage: UNK
     Route: 065
     Dates: start: 20191209
  82. DEXAMETHASONE SODIUM PHOSPHATE. [Suspect]
     Active Substance: DEXAMETHASONE SODIUM PHOSPHATE
     Indication: SEPSIS
     Dosage: UNK
     Route: 065
     Dates: start: 20210119, end: 20210120
  83. GABEXATE MESILATE [Concomitant]
     Active Substance: GABEXATE MESYLATE
     Indication: AMYLASE INCREASED
     Dosage: UNK
     Route: 065
     Dates: start: 20210208, end: 20210210
  84. POSACONAZOLE [Concomitant]
     Active Substance: POSACONAZOLE
     Indication: STOMATITIS
     Dosage: UNK
     Route: 065
     Dates: start: 20201218, end: 20210119
  85. FILGRASTIM [Concomitant]
     Active Substance: FILGRASTIM
     Indication: NEUTROPENIA
     Dosage: UNK
     Route: 065
     Dates: start: 20201128
  86. MAGNESIUM SULFATE. [Concomitant]
     Active Substance: MAGNESIUM SULFATE
     Indication: HYPOMAGNESAEMIA
     Dosage: UNK
     Route: 065
     Dates: start: 20201224, end: 20210131
  87. INSULIN HUMAN [Concomitant]
     Active Substance: INSULIN HUMAN
     Dosage: UNK
     Route: 065
     Dates: start: 20210205, end: 20210206
  88. INSULIN HUMAN [Concomitant]
     Active Substance: INSULIN HUMAN
     Dosage: UNK
     Route: 065
     Dates: start: 20210207, end: 20210212
  89. FUROSEMIDE. [Concomitant]
     Active Substance: FUROSEMIDE
     Indication: PROPHYLAXIS
     Dosage: UNK
     Route: 065
     Dates: start: 20210116, end: 20210203
  90. PENTAMIDINE ISETIONATE [Concomitant]
     Active Substance: PENTAMIDINE ISETHIONATE
     Indication: PROPHYLAXIS
     Dosage: UNK
     Route: 065
     Dates: start: 20210126, end: 20210126
  91. SOLDEM 1 [Concomitant]
     Active Substance: DEXTROSE\SODIUM CHLORIDE\SODIUM LACTATE
     Dosage: UNK
     Route: 065
     Dates: start: 20210203, end: 20210204
  92. SODIUM CHLORIDE. [Concomitant]
     Active Substance: SODIUM CHLORIDE
     Dosage: UNK
     Route: 065
     Dates: start: 20210131, end: 20210131
  93. POTASSIUM CHLORIDE. [Concomitant]
     Active Substance: POTASSIUM CHLORIDE
     Indication: HYPOKALAEMIA
     Dosage: UNK
     Route: 065
     Dates: start: 20201127
  94. POTASSIUM CHLORIDE. [Concomitant]
     Active Substance: POTASSIUM CHLORIDE
     Dosage: UNK
     Route: 065
     Dates: start: 20210122, end: 20210124

REACTIONS (1)
  - Gastrointestinal ulcer [Not Recovered/Not Resolved]

NARRATIVE: CASE EVENT DATE: 20210208
